FAERS Safety Report 16998817 (Version 1)
Quarter: 2019Q4

REPORT INFORMATION
  Report Type: Spontaneous
  Country: CN (occurrence: CN)
  Receive Date: 20191106
  Receipt Date: 20191106
  Transmission Date: 20200122
  Serious: Yes (Other)
  Sender: FDA-Public Use
  Company Number: CN-ROCHE-2452858

PATIENT
  Age: 52 Year
  Sex: Female

DRUGS (10)
  1. CALCIUM FOLINATE [Suspect]
     Active Substance: LEUCOVORIN CALCIUM
     Dosage: 5 CYCLE
     Route: 065
     Dates: end: 20180417
  2. FLUOROURACIL. [Suspect]
     Active Substance: FLUOROURACIL
     Dosage: 5 CYCLES
     Route: 065
     Dates: end: 20180417
  3. FLUOROURACIL. [Suspect]
     Active Substance: FLUOROURACIL
     Dosage: 3 CYCLE
     Route: 065
     Dates: start: 20170917, end: 20171112
  4. AVASTIN [Suspect]
     Active Substance: BEVACIZUMAB
     Indication: ADENOCARCINOMA OF COLON
     Dosage: 5 CYCLE
     Route: 042
     Dates: start: 20170512, end: 20170730
  5. XELODA [Suspect]
     Active Substance: CAPECITABINE
     Indication: ADENOCARCINOMA OF COLON
     Dosage: 8 CYCLE
     Route: 048
  6. FLUOROURACIL. [Suspect]
     Active Substance: FLUOROURACIL
     Indication: ADENOCARCINOMA OF COLON
     Dosage: 5 CYCLE
     Route: 065
     Dates: start: 20170512, end: 20170730
  7. IRINOTECAN [Concomitant]
     Active Substance: IRINOTECAN
     Indication: ADENOCARCINOMA OF COLON
     Dosage: 5 CYCLES
     Route: 065
     Dates: end: 20180417
  8. CALCIUM FOLINATE [Suspect]
     Active Substance: LEUCOVORIN CALCIUM
     Indication: ADENOCARCINOMA OF COLON
     Dosage: 3 CYCLE
     Route: 065
     Dates: start: 20170917, end: 20171112
  9. OXALIPLATIN. [Suspect]
     Active Substance: OXALIPLATIN
     Indication: ADENOCARCINOMA OF COLON
     Dosage: 5 CYCLE
     Route: 065
     Dates: start: 20170512, end: 20170730
  10. OXALIPLATIN. [Suspect]
     Active Substance: OXALIPLATIN
     Dosage: 3 CYCLE
     Route: 065
     Dates: start: 20170917, end: 20171112

REACTIONS (4)
  - Bone marrow failure [Unknown]
  - Drug hypersensitivity [Unknown]
  - Gastrointestinal disorder [Unknown]
  - Rash [Unknown]
